FAERS Safety Report 5205215-0 (Version None)
Quarter: 2006Q4

REPORT INFORMATION
  Report Type: 
  Country: None (occurrence: None)
  Receive Date: 20061027
  Receipt Date: 20060328
  Transmission Date: 20070319
  Serious: Yes (Other)
  Sender: FDA-Public Use
  Company Number: HQWYE599426AUG04

PATIENT
  Age: 64 Year
  Sex: Female
  Weight: 83.99 kg

DRUGS (9)
  1. PREMARIN [Suspect]
     Indication: MENOPAUSE
  2. CYCRIN [Suspect]
     Indication: MENOPAUSE
  3. MEDROXYPROGESTERONE [Suspect]
     Indication: MENOPAUSE
  4. PREMPRO [Suspect]
     Indication: MENOPAUSE
  5. PROVERA [Suspect]
     Indication: DRUG USE FOR UNKNOWN INDICATION
  6. ATENOLOL [Concomitant]
  7. SYNTHROID [Concomitant]
  8. HYDROCHLOROTHIAZIDE [Concomitant]
  9. WELLBUTRIN [Concomitant]

REACTIONS (2)
  - BREAST CANCER [None]
  - BREAST PAIN [None]
